FAERS Safety Report 9928352 (Version 1)
Quarter: 2014Q1

REPORT INFORMATION
  Report Type: Spontaneous
  Country: NL (occurrence: NL)
  Receive Date: 20140227
  Receipt Date: 20140227
  Transmission Date: 20141002
  Serious: Yes (Other)
  Sender: FDA-Public Use
  Company Number: NL-TEVA-464047ISR

PATIENT
  Age: 32 Year
  Sex: Male
  Weight: 77 kg

DRUGS (1)
  1. INDOMETACINE CAPSULE MGA 75MG [Suspect]
     Indication: CLUSTER HEADACHE
     Dosage: 150 MILLIGRAM DAILY;
     Route: 048
     Dates: start: 20131108, end: 20131109

REACTIONS (1)
  - Psychotic disorder [Recovered/Resolved]
